FAERS Safety Report 6266063-6 (Version None)
Quarter: 2009Q3

REPORT INFORMATION
  Report Type: 
  Country: None (occurrence: None)
  Receive Date: 20090713
  Receipt Date: 20090703
  Transmission Date: 20100115
  Serious: Yes (Life-Threatening)
  Sender: FDA-Public Use
  Company Number: JP-JNJFOC-20090701668

PATIENT
  Age: 40 Year
  Sex: Male
  Weight: 52 kg

DRUGS (6)
  1. REMICADE [Suspect]
     Dosage: 4TH INFUSION
     Route: 042
  2. REMICADE [Suspect]
     Dosage: 2 DOSES ON UNKNOWN DATES
     Route: 042
  3. REMICADE [Suspect]
     Indication: CROHN'S DISEASE
     Route: 042
  4. LEUKERIN [Concomitant]
     Route: 048
  5. PENTASA [Concomitant]
     Route: 048
  6. ELENTAL [Concomitant]
     Indication: CROHN'S DISEASE
     Dosage: 3PAC
     Route: 048

REACTIONS (3)
  - MALIGNANT NEOPLASM PROGRESSION [None]
  - RECTAL CANCER [None]
  - RECTAL STENOSIS [None]
